FAERS Safety Report 12531838 (Version 5)
Quarter: 2016Q4

REPORT INFORMATION
  Report Type: Report from Study
  Country: None (occurrence: EC)
  Receive Date: 20160706
  Receipt Date: 20161008
  Transmission Date: 20170207
  Serious: Yes (Other)
  Sender: FDA-Public Use
  Company Number: EC-ABBVIE-16K-047-1664160-00

PATIENT
  Age: 41 Year
  Sex: Female

DRUGS (1)
  1. HUMIRA [Suspect]
     Active Substance: ADALIMUMAB
     Indication: ANKYLOSING SPONDYLITIS
     Route: 058
     Dates: start: 201411, end: 20160915

REACTIONS (6)
  - Pain [Recovering/Resolving]
  - Gastric disorder [Unknown]
  - Syncope [Recovered/Resolved]
  - Hypoaesthesia [Recovering/Resolving]
  - Blindness [Unknown]
  - Colitis [Unknown]

NARRATIVE: CASE EVENT DATE: 20160601
